FAERS Safety Report 8951665 (Version 1)
Quarter: 2012Q4

REPORT INFORMATION
  Report Type: 
  Country: US (occurrence: US)
  Receive Date: 20121204
  Receipt Date: 20121204
  Transmission Date: 20130627
  Serious: Yes (Other)
  Sender: FDA-Public Use
  Company Number: CHPA2012US024033

PATIENT
  Age: 93 Year
  Sex: Female

DRUGS (1)
  1. MAALOX ANTACID/ANTIGAS MS LIQ COOL MINT [Suspect]
     Indication: GASTRIC DISORDER
     Dosage: 2 TSP, UNK
     Route: 048
     Dates: end: 2011

REACTIONS (4)
  - Pelvic fracture [Unknown]
  - Malaise [Unknown]
  - Off label use [Unknown]
  - Nausea [Unknown]
